FAERS Safety Report 23204302 (Version 2)
Quarter: 2023Q4

REPORT INFORMATION
  Report Type: Spontaneous
  Country: JP (occurrence: JP)
  Receive Date: 20231120
  Receipt Date: 20231213
  Transmission Date: 20240109
  Serious: Yes (Other)
  Sender: FDA-Public Use
  Company Number: JP-NBI-BS202300336

PATIENT

DRUGS (1)
  1. OFEV [Suspect]
     Active Substance: NINTEDANIB
     Indication: Idiopathic interstitial pneumonia
     Route: 065

REACTIONS (17)
  - Pneumothorax [Unknown]
  - Lung neoplasm malignant [Unknown]
  - Thrombosis [Unknown]
  - Cardiac failure [Unknown]
  - Chronic respiratory failure [Unknown]
  - Lung transplant [Unknown]
  - Malaise [Unknown]
  - Nausea [Unknown]
  - Decreased appetite [Unknown]
  - Weight decreased [Unknown]
  - Diarrhoea [Unknown]
  - Enteritis [Unknown]
  - Hepatotoxicity [Unknown]
  - Thrombocytopenia [Unknown]
  - Infection [Unknown]
  - Somatic symptom disorder [Unknown]
  - Inappropriate schedule of product administration [Unknown]
